FAERS Safety Report 5065352-0 (Version None)
Quarter: 2006Q3

REPORT INFORMATION
  Report Type: 
  Country: None (occurrence: None)
  Receive Date: 20060707
  Receipt Date: 20060208
  Transmission Date: 20061208
  Serious: Yes (Other)
  Sender: FDA-Public Use
  Company Number: SUS1-2006-00205

PATIENT
  Age: 46 Year
  Sex: Female

DRUGS (2)
  1. PENTASA [Suspect]
     Indication: COLITIS ULCERATIVE
     Dosage: 2 G DAILY, ORAL
     Route: 048
     Dates: start: 20051108, end: 20060120
  2. PENTASA [Suspect]
     Indication: COLITIS ULCERATIVE
     Dosage: 1 G DAILY, RECTAL
     Route: 054
     Dates: start: 20020801, end: 20060120

REACTIONS (1)
  - HEPATITIS [None]
